FAERS Safety Report 8776917 (Version 1)
Quarter: 2012Q4

REPORT INFORMATION
  Report Type: 
  Country: US (occurrence: US)
  Receive Date: 20120911
  Receipt Date: 20120911
  Transmission Date: 20130627
  Serious: No
  Sender: FDA-Public Use
  Company Number: US-PFIZER INC-2012223294

PATIENT
  Age: 51 Year
  Sex: Female
  Weight: 77 kg

DRUGS (18)
  1. CHANTIX [Suspect]
     Indication: SMOKING CESSATION THERAPY
     Dosage: 0.5 mg, 1x/day
     Route: 048
     Dates: start: 2010
  2. CHANTIX [Suspect]
     Dosage: 1 mg, 2x/day
     Route: 048
     Dates: end: 2010
  3. PLAVIX [Concomitant]
     Dosage: UNK
  4. VITAMIN B12 [Concomitant]
     Dosage: UNK
  5. MULTIVITAMINS [Concomitant]
     Dosage: UNK
  6. CALCIUM [Concomitant]
     Dosage: UNK
  7. MOTRIN [Concomitant]
     Dosage: 800 mg, 3x/day
  8. GABAPENTIN [Concomitant]
     Dosage: 800 mg, 3x/day
  9. LEVOTHYROXINE [Concomitant]
     Dosage: 88 ug, 2x/day
  10. SIMVASTATIN [Concomitant]
     Dosage: 20 mg, 1x/day
  11. RANITIDINE [Concomitant]
     Indication: GASTRIC DISORDER
     Dosage: 300 mg, 2x/day
  12. COREG [Concomitant]
     Dosage: 12.5 mg, UNK
  13. SYMBICORT [Concomitant]
     Dosage: 160/4.5, UNK
  14. OXYCODONE [Concomitant]
     Dosage: 15 mg, 5x/day
  15. DOCUSATE [Concomitant]
     Dosage: UNK, 2x/day
  16. ASPIRIN [Concomitant]
     Dosage: 81 mg, 1x/day
  17. OMEGA 3 [Concomitant]
     Dosage: UNK
  18. BLACK COHOSH [Concomitant]
     Dosage: UNK

REACTIONS (2)
  - Thinking abnormal [Unknown]
  - Vomiting [Unknown]
